FAERS Safety Report 8014718-5 (Version None)
Quarter: 2011Q4

REPORT INFORMATION
  Report Type: 
  Country: None (occurrence: None)
  Receive Date: 20111229
  Receipt Date: 20111220
  Transmission Date: 20120403
  Serious: Yes (Other)
  Sender: FDA-Public Use
  Company Number: BR-ABBOTT-11P-020-0713996-00

PATIENT
  Sex: Female
  Weight: 63 kg

DRUGS (9)
  1. FLANCOX [Concomitant]
     Indication: RHEUMATOID ARTHRITIS
     Route: 048
  2. ALLEGRA [Concomitant]
     Indication: PERIPHERAL NERVE INFECTION
     Route: 048
  3. HIDROMED [Concomitant]
     Indication: HYPERTENSION
     Route: 048
  4. HUMIRA [Suspect]
     Indication: RHEUMATOID ARTHRITIS
     Route: 058
  5. ARAVA [Concomitant]
     Indication: PRODUCT USED FOR UNKNOWN INDICATION
  6. METICORTEN [Concomitant]
     Indication: PRODUCT USED FOR UNKNOWN INDICATION
  7. OMEPRAZOLE [Concomitant]
     Indication: GASTRIC DISORDER
     Route: 048
  8. REUQUINOL [Concomitant]
     Indication: RHEUMATOID ARTHRITIS
     Route: 048
  9. PREDNISONE TAB [Concomitant]
     Indication: RHEUMATOID ARTHRITIS
     Route: 048

REACTIONS (13)
  - COUGH [None]
  - INFLUENZA [None]
  - BONE DECALCIFICATION [None]
  - RIB FRACTURE [None]
  - DYSPNOEA [None]
  - INFECTION [None]
  - SPUTUM DISCOLOURED [None]
  - CHEST PAIN [None]
  - VASCULITIS [None]
  - WHEEZING [None]
  - LUNG NEOPLASM [None]
  - PAIN IN EXTREMITY [None]
  - FALL [None]
